FAERS Safety Report 10008607 (Version 2)
Quarter: 2014Q1

REPORT INFORMATION
  Report Type: Spontaneous
  Country: US (occurrence: US)
  Receive Date: 20140312
  Receipt Date: 20140312
  Transmission Date: 20141002
  Serious: No
  Sender: FDA-Public Use
  Company Number: US-INCYTE CORPORATION-2012IN000243

PATIENT
  Age: 90 Year
  Sex: Female

DRUGS (7)
  1. JAKAFI [Suspect]
     Indication: MYELOFIBROSIS
     Dosage: 15 MG, BID
     Route: 048
     Dates: start: 20120209
  2. LEVOTHYROXINE [Concomitant]
  3. LASIX [Concomitant]
  4. POTASSIUM [Concomitant]
     Indication: SUPPLEMENTATION THERAPY
  5. ALLOPURINOL [Concomitant]
  6. XANAX [Concomitant]
  7. RESTORIL [Concomitant]

REACTIONS (2)
  - Bone pain [Not Recovered/Not Resolved]
  - Myalgia [Not Recovered/Not Resolved]
